FAERS Safety Report 7596438-4 (Version None)
Quarter: 2011Q3

REPORT INFORMATION
  Report Type: 
  Country: None (occurrence: None)
  Receive Date: 20110708
  Receipt Date: 20110701
  Transmission Date: 20111222
  Serious: Yes (Hospitalization, Other)
  Sender: FDA-Public Use
  Company Number: US-BRISTOL-MYERS SQUIBB COMPANY-15871031

PATIENT
  Age: 89 Year
  Sex: Female

DRUGS (4)
  1. COUMADIN [Suspect]
     Indication: ATRIAL FIBRILLATION
  2. TOPROL-XL [Concomitant]
  3. LASIX [Concomitant]
     Dosage: EVERY MORNING
  4. COUMADIN [Suspect]
     Indication: CARDIAC FAILURE CONGESTIVE

REACTIONS (2)
  - SPINAL CORD DISORDER [None]
  - HIP SURGERY [None]
